FAERS Safety Report 9802922 (Version 1)
Quarter: 2014Q1

REPORT INFORMATION
  Report Type: Report from Study
  Country: US (occurrence: US)
  Receive Date: 20140108
  Receipt Date: 20140108
  Transmission Date: 20141002
  Serious: Yes (Other)
  Sender: FDA-Public Use
  Company Number: US-ROCHE-1330619

PATIENT
  Age: 50 Year
  Sex: Male
  Weight: 57.3 kg

DRUGS (13)
  1. XELODA [Suspect]
     Indication: RECTAL CANCER
     Route: 048
     Dates: start: 20120606, end: 20120627
  2. XELODA [Suspect]
     Dosage: TAKE FOR 14 DAYS, THEN OFF 7 DAYS
     Route: 048
  3. AVASTIN [Suspect]
     Indication: RECTAL CANCER
     Route: 042
     Dates: start: 20120606
  4. AVASTIN [Suspect]
     Indication: BONE CANCER
     Route: 042
     Dates: start: 2010
  5. AVASTIN [Suspect]
     Route: 042
     Dates: start: 20120718
  6. AVASTIN [Suspect]
     Route: 042
     Dates: start: 20111007
  7. OXALIPLATIN [Concomitant]
     Indication: RECTAL CANCER
     Route: 042
     Dates: start: 20120606
  8. PALONOSETRON [Concomitant]
     Route: 042
  9. ATROPINE [Concomitant]
     Route: 065
  10. DEXAMETHASONE [Concomitant]
     Route: 042
  11. IRINOTECAN [Concomitant]
     Route: 065
  12. LEUCOVORIN [Concomitant]
     Route: 065
  13. ADRUCIL [Concomitant]
     Route: 042

REACTIONS (16)
  - Diarrhoea [Recovered/Resolved]
  - Hypokalaemia [Recovered/Resolved]
  - Hypocalcaemia [Recovered/Resolved]
  - Abdominal pain upper [Unknown]
  - Nausea [Unknown]
  - Fatigue [Unknown]
  - Dehydration [Unknown]
  - Drug eruption [Unknown]
  - Abnormal loss of weight [Unknown]
  - Early satiety [Unknown]
  - Neuropathy peripheral [Unknown]
  - Proteinuria [Unknown]
  - Chest pain [Unknown]
  - Vomiting [Unknown]
  - Diarrhoea [Unknown]
  - Hypokalaemia [Unknown]
